FAERS Safety Report 6823454-X (Version None)
Quarter: 2010Q3

REPORT INFORMATION
  Report Type: 
  Country: None (occurrence: None)
  Receive Date: 20100708
  Receipt Date: 20100624
  Transmission Date: 20110219
  Serious: Yes (Other)
  Sender: FDA-Public Use
  Company Number: PHHY2010JP40954

PATIENT
  Age: 32 Year
  Sex: Female

DRUGS (4)
  1. SANDIMMUNE [Suspect]
     Indication: RENAL TRANSPLANT
     Dosage: UNK
  2. CELLCEPT [Concomitant]
     Indication: RENAL TRANSPLANT
  3. PREDONINE [Concomitant]
     Indication: RENAL TRANSPLANT
  4. RADIOTHERAPY [Concomitant]

REACTIONS (9)
  - ABDOMINAL PAIN UPPER [None]
  - ADENOMA BENIGN [None]
  - BRAIN MASS [None]
  - CRANIOTOMY [None]
  - HEADACHE [None]
  - INTUSSUSCEPTION [None]
  - LYMPHOMA [None]
  - MASS [None]
  - SURGERY [None]
